FAERS Safety Report 21584191 (Version 1)
Quarter: 2022Q4

REPORT INFORMATION
  Report Type: Report from Study
  Country: IT (occurrence: IT)
  Receive Date: 20221111
  Receipt Date: 20221111
  Transmission Date: 20230112
  Serious: Yes (Hospitalization, Other)
  Sender: FDA-Public Use
  Company Number: None

PATIENT
  Age: 38 Year
  Sex: Female

DRUGS (2)
  1. OLANZAPINE [Suspect]
     Active Substance: OLANZAPINE
     Indication: Psychotic disorder
     Dosage: DOSAGE: 530 UNIT OF MEASURE: MILLIGRAMS, FREQUENCY OF ADMINISTRATION: TOTAL, UNIT DOSE : 530 MG
     Route: 048
     Dates: start: 20220708
  2. TAVOR (LORAZEPAM) [Suspect]
     Active Substance: LORAZEPAM
     Indication: Psychotic disorder
     Dosage: DOSAGE: 1 UNIT OF MEASURE: DOSAGE UNIT, FREQUENCY OF ADMINISTRATION: TOTAL, UNIT DOSE : 1 DF
     Route: 048

REACTIONS (2)
  - Sopor [Recovering/Resolving]
  - Respiratory alkalosis [Recovering/Resolving]

NARRATIVE: CASE EVENT DATE: 20220708
